FAERS Safety Report 8413225-5 (Version None)
Quarter: 2012Q2

REPORT INFORMATION
  Report Type: 
  Country: None (occurrence: None)
  Receive Date: 20120605
  Receipt Date: 20120529
  Transmission Date: 20120825
  Serious: Yes (Other)
  Sender: FDA-Public Use
  Company Number: BE-B.I. PHARMACEUTICALS,INC./RIDGEFIELD-2012-BL-00313BL

PATIENT
  Sex: Female
  Weight: 68 kg

DRUGS (14)
  1. LYRICA [Concomitant]
     Dosage: 600 MG
  2. TAMBOCOR [Concomitant]
     Dosage: 200 MG
  3. ZOCOR [Concomitant]
     Dosage: 40 MG
  4. OMEPRAZOLE (PRISOLEC) [Concomitant]
     Dosage: 40 MG
  5. CYMBALTA [Concomitant]
     Dosage: 60 MG
  6. MOVIPREP [Concomitant]
     Dosage: BAG
  7. DUSPATALIN [Concomitant]
     Dosage: 405 MG
  8. TRAMADOL HCL [Concomitant]
     Dosage: 200 MG
  9. LEXOTAN [Concomitant]
     Dosage: 6 MG
  10. PRADAXA [Suspect]
     Indication: ATRIAL FIBRILLATION
     Dosage: 220 MG
     Route: 048
     Dates: start: 20120127, end: 20120416
  11. PRADAXA [Suspect]
     Dosage: 220 MG
     Route: 048
     Dates: start: 20111109, end: 20111114
  12. DYTAC [Concomitant]
     Dosage: 50 MG
  13. BISOPROLOL FUMARATE [Concomitant]
     Dosage: 5 MG
  14. BETAHISTINE EG [Concomitant]
     Dosage: 48 MG

REACTIONS (3)
  - MUSCLE HAEMORRHAGE [None]
  - ISCHAEMIC STROKE [None]
  - DIARRHOEA [None]
